FAERS Safety Report 6639538-5 (Version None)
Quarter: 2010Q1

REPORT INFORMATION
  Report Type: 
  Country: None (occurrence: None)
  Receive Date: 20100318
  Receipt Date: 20100309
  Transmission Date: 20100710
  Serious: Yes (Congenital Anomaly)
  Sender: FDA-Public Use
  Company Number: FR-JNJFOC-20081201121

PATIENT
  Sex: Female
  Weight: 3.48 kg

DRUGS (5)
  1. EPITOMAX [Suspect]
     Indication: DRUG EXPOSURE DURING PREGNANCY
     Route: 064
  2. LAMICTAL CD [Suspect]
     Indication: DRUG EXPOSURE DURING PREGNANCY
     Route: 064
  3. TRILEPTAL [Suspect]
     Indication: DRUG EXPOSURE DURING PREGNANCY
     Route: 064
  4. CLONAZEPAM [Suspect]
     Indication: DRUG EXPOSURE DURING PREGNANCY
     Route: 064
  5. FOLIC ACID [Concomitant]
     Route: 064

REACTIONS (7)
  - DYSMORPHISM [None]
  - EAR DEFORMITY ACQUIRED [None]
  - LIMB MALFORMATION [None]
  - LOW SET EARS [None]
  - MATERNAL DRUGS AFFECTING FOETUS [None]
  - MICROTIA [None]
  - RETROGNATHIA [None]
